FAERS Safety Report 22538541 (Version 1)
Quarter: 2023Q2

REPORT INFORMATION
  Report Type: Spontaneous
  Country: US (occurrence: US)
  Receive Date: 20230609
  Receipt Date: 20230609
  Transmission Date: 20230722
  Serious: Yes (Hospitalization)
  Sender: FDA-Public Use
  Company Number: US-drreddys-LIT/USA/23/0166419

PATIENT
  Age: 20 Year
  Sex: Male

DRUGS (1)
  1. DOBUTAMINE HYDROCHLORIDE [Suspect]
     Active Substance: DOBUTAMINE HYDROCHLORIDE
     Indication: Cardiogenic shock

REACTIONS (2)
  - Spondyloepiphyseal dysplasia [Unknown]
  - Drug ineffective [Unknown]
